FAERS Safety Report 23047394 (Version 2)
Quarter: 2023Q4

REPORT INFORMATION
  Report Type: Report from Study
  Country: US (occurrence: US)
  Receive Date: 20231010
  Receipt Date: 20231010
  Transmission Date: 20240110
  Serious: Yes (Death, Other)
  Sender: FDA-Public Use
  Company Number: US-ABBVIE-5442673

PATIENT
  Age: 78 Year
  Sex: Male

DRUGS (19)
  1. VENCLEXTA [Suspect]
     Active Substance: VENETOCLAX
     Indication: Acute myeloid leukaemia
     Dosage: FORM STRENGTH: 50 MILLIGRAMS ?TAKE 2 TABLET(S) BY MOUTH ALONG WITH 1-50 MG TABLET AND 2-10MG TABL...
     Route: 048
  2. VENCLEXTA [Suspect]
     Active Substance: VENETOCLAX
     Indication: Acute myeloid leukaemia
     Dosage: TAKE TWO TABLET(S) BY MOUTH ONCE A DAY AS DIRECTED?FORM STRENGTH: 100 MILLIGRAMS
     Route: 048
     Dates: end: 20221103
  3. VENCLEXTA [Suspect]
     Active Substance: VENETOCLAX
     Indication: Acute myeloid leukaemia
     Dosage: TAKE 4 TABLET(S) BY MOUTH (400MG) DAILY ON DAYS 1-21?FORM STRENGTH: 100 MILLIGRAMS
     Route: 048
  4. LOSARTAN [Concomitant]
     Active Substance: LOSARTAN
     Indication: Product used for unknown indication
     Dosage: 1 TABLET(S) BY MOUTH ONCE A DAY ?FORM STRENGTH 25 MILIGRAM
     Route: 048
     Dates: end: 20200122
  5. ACYCLOVIR [Concomitant]
     Active Substance: ACYCLOVIR
     Indication: Product used for unknown indication
     Dosage: FORM STRENGTH 400 MG?1 TABLET(S) BY MOUTH TWICE A DAY
     Route: 048
     Dates: end: 20221103
  6. AMIODARONE [Concomitant]
     Active Substance: AMIODARONE
     Indication: Product used for unknown indication
     Dosage: FORM STRENGTH 200 MG?1 TABLET(S) BY MOUTH ONCE A DAY
     Route: 048
     Dates: end: 20191024
  7. FAMOTIDINE [Concomitant]
     Active Substance: FAMOTIDINE
     Indication: Product used for unknown indication
     Dosage: TAKE 1 TABLET BY MOUTH TWICE A DAY ?FORM STRENGTH 20 MG
     Route: 048
     Dates: start: 20220825
  8. FLUOXETINE [Concomitant]
     Active Substance: FLUOXETINE HYDROCHLORIDE
     Indication: Product used for unknown indication
     Dosage: FORM STRENGTH 10 MG?ONE CAPSULE BY MOUTH ONCE A DAY/AM
     Route: 048
     Dates: end: 20210712
  9. FUROSEMIDE [Concomitant]
     Active Substance: FUROSEMIDE
     Indication: Product used for unknown indication
     Dosage: ONE TABLET(S) BY MOUTH ONCE A DAY
     Route: 048
     Dates: end: 20200225
  10. CRESEMBA [Concomitant]
     Active Substance: ISAVUCONAZONIUM SULFATE
     Indication: Product used for unknown indication
     Dosage: 2 CAPSULE(S) BY MOUTH ONCE A DAY ?FORM STRENGTH 186 MG
     Route: 048
     Dates: end: 20221103
  11. LEVOTHYROXINE [Concomitant]
     Active Substance: LEVOTHYROXINE
     Indication: Product used for unknown indication
     Dosage: FORM STRENGTH 12 MCG?1 TABLET(S) BY MOUTH ONE TABLET 5 DAYS A WEEK, 1/2 TAB ON 6 TH DAY
     Route: 048
     Dates: end: 20220222
  12. OMEPRAZOLE [Concomitant]
     Active Substance: OMEPRAZOLE
     Indication: Product used for unknown indication
     Dosage: 1 CAPSULE(S) BY MOUTH ONCE A DAY?FORM STRENGTH 40 MILIGRAMS?DELAYED RELEASE
     Route: 048
     Dates: end: 20220624
  13. RIVASTIGMINE [Concomitant]
     Active Substance: RIVASTIGMINE
     Indication: Product used for unknown indication
     Dosage: 4.6 MG/24 HOUR PATCH 24 HOUR TRANSDERMAL?APPLY ONE PATCH ONCE DAILY
     Route: 062
     Dates: end: 20221025
  14. SPIRONOLACTONE [Concomitant]
     Active Substance: SPIRONOLACTONE
     Indication: Product used for unknown indication
     Dosage: 0.5 (ONE HALF) TABLET(S) BY MOUTH ONCE A DAY ?FORM STRENGTH 25MILIGRAM
     Route: 048
     Dates: end: 20220614
  15. WARFARIN [Concomitant]
     Active Substance: WARFARIN
     Indication: Product used for unknown indication
     Dosage: FORM STRENGTH 1 MILIGRAM ?TAKE 2 AND 1/2 TABLETS BY MOUTH EVERY DAY
     Route: 048
     Dates: end: 20220422
  16. Caltrate 600+D plus [Concomitant]
     Indication: Product used for unknown indication
     Dosage: 1 TAB-CAP BY MOUTH ONCE A DAY?FORM STRENGTH 600 MG CALCIUM (1,500 MG)-800 UNIT CHEWABLE TABLETS
     Route: 048
     Dates: end: 20190523
  17. VITAMIN B12 [Concomitant]
     Active Substance: CYANOCOBALAMIN
     Indication: Product used for unknown indication
     Dosage: 1 CAPSULE(S) BY MOUTH ONCE A DAY?FORM STRENGTH 1,000 MCG
     Route: 048
     Dates: end: 20221103
  18. FERROUS SULFATE [Concomitant]
     Active Substance: FERROUS SULFATE
     Indication: Product used for unknown indication
     Dosage: 1 TABLET(S) MOUTH ONCE A DAY/AM?FORM STRENGTH 325 MG (65 MG IRON)
     Route: 048
     Dates: end: 20190722
  19. MAGNESIUM OXIDE [Concomitant]
     Active Substance: MAGNESIUM OXIDE
     Indication: Product used for unknown indication
     Dosage: TAKE 1 TABLET BY MOUTH TWICE A DAY?FORM STRENGTH 400 MG
     Route: 048
     Dates: end: 20220124

REACTIONS (1)
  - Acute myeloid leukaemia [Fatal]

NARRATIVE: CASE EVENT DATE: 20230810
